FAERS Safety Report 10185226 (Version 2)
Quarter: 2014Q2

REPORT INFORMATION
  Report Type: Spontaneous
  Country: BR (occurrence: BR)
  Receive Date: 20140521
  Receipt Date: 20140528
  Transmission Date: 20141212
  Serious: Yes (Hospitalization, Other)
  Sender: FDA-Public Use
  Company Number: BR-PFIZER INC-2014131976

PATIENT
  Age: 52 Year
  Sex: Male
  Weight: 90.2 kg

DRUGS (7)
  1. SUTENT [Suspect]
     Indication: RENAL CANCER METASTATIC
     Dosage: 50 MG, DAILY CYCLIC 28 DAYS, EVERY 42 DAYS
     Route: 048
     Dates: start: 20140116, end: 20140128
  2. SUTENT [Suspect]
     Dosage: UNK
     Dates: start: 20140227, end: 20140429
  3. SUTENT [Suspect]
     Dosage: 50 MG, ALTERNATE DAY
     Route: 048
     Dates: start: 20140516
  4. TYLEX [Concomitant]
     Dosage: 30 MG (1 TABLET), 4X/DAY (EACH 6 HOURS)
     Dates: start: 20140116, end: 20140429
  5. WARFARIN [Concomitant]
     Dosage: AT 7.5MG DAILY WITH DOSE ADJUSTMENTS IN THE PERIOD
     Route: 048
     Dates: start: 201308, end: 20140128
  6. WARFARIN [Concomitant]
     Dosage: UNK
     Route: 048
     Dates: end: 20140429
  7. ALLOPURINOL [Concomitant]
     Dosage: 100 MG, DAILY
     Route: 048
     Dates: start: 20140116, end: 20140129

REACTIONS (21)
  - Haematuria [Recovering/Resolving]
  - Epistaxis [Recovering/Resolving]
  - Gingival bleeding [Recovering/Resolving]
  - Subcutaneous abscess [Recovering/Resolving]
  - Skin reaction [Recovering/Resolving]
  - Hyperaemia [Recovering/Resolving]
  - Pruritus [Recovering/Resolving]
  - Pigmentation disorder [Recovered/Resolved]
  - Exfoliative rash [Recovering/Resolving]
  - Hyperaesthesia [Recovering/Resolving]
  - Furuncle [Recovering/Resolving]
  - Skin haemorrhage [Recovering/Resolving]
  - Localised infection [Recovering/Resolving]
  - Rash [Recovering/Resolving]
  - Rash [Recovering/Resolving]
  - Papule [Recovering/Resolving]
  - Haematuria [Unknown]
  - Haemoptysis [Unknown]
  - Cyanosis [Unknown]
  - Disease progression [Unknown]
  - Renal cancer metastatic [Unknown]
